FAERS Safety Report 8100170-8 (Version None)
Quarter: 2012Q1

REPORT INFORMATION
  Report Type: 
  Country: None (occurrence: None)
  Receive Date: 20120129
  Receipt Date: 20111221
  Transmission Date: 20120608
  Serious: No
  Sender: FDA-Public Use
  Company Number: US-ABBOTT-11P-163-0879388-00

PATIENT
  Age: 52 Year
  Sex: Female

DRUGS (2)
  1. SYNTHROID [Concomitant]
     Indication: THYROID DISORDER
     Dosage: DAILY
  2. HUMIRA [Suspect]
     Indication: PSORIATIC ARTHROPATHY

REACTIONS (4)
  - INCORRECT DOSE ADMINISTERED [None]
  - INJECTION SITE PAIN [None]
  - DEVICE MALFUNCTION [None]
  - PSORIASIS [None]
